FAERS Safety Report 9999595 (Version 1)
Quarter: 2014Q1

REPORT INFORMATION
  Report Type: Spontaneous
  Country: US (occurrence: None)
  Receive Date: 20140228
  Receipt Date: 20140228
  Transmission Date: 20141002
  Serious: Yes (Other)
  Sender: FDA-Public Use
  Company Number: PHEH2013US006865

PATIENT
  Age: 79 Year
  Sex: Male

DRUGS (2)
  1. CARBAMAZEPINE [Suspect]
  2. TONABERSAT [Suspect]

REACTIONS (17)
  - Psychotic disorder [None]
  - Blood pressure increased [None]
  - Dizziness [None]
  - Nervousness [None]
  - Anxiety [None]
  - Agitation [None]
  - Tachycardia [None]
  - Emotional distress [None]
  - Hypervigilance [None]
  - Abnormal behaviour [None]
  - Speech disorder [None]
  - Thinking abnormal [None]
  - Judgement impaired [None]
  - Cognitive disorder [None]
  - Disturbance in attention [None]
  - Delusion [None]
  - Irritability [None]
